FAERS Safety Report 8182422-9 (Version None)
Quarter: 2012Q1

REPORT INFORMATION
  Report Type: 
  Country: None (occurrence: None)
  Receive Date: 20120305
  Receipt Date: 20120221
  Transmission Date: 20120608
  Serious: Yes (Congenital Anomaly, Other)
  Sender: FDA-Public Use
  Company Number: DE-BRISTOL-MYERS SQUIBB COMPANY-16411464

PATIENT
  Sex: Male
  Weight: 1 kg

DRUGS (3)
  1. OXCARBAZEPINE [Suspect]
     Route: 064
  2. ABILIFY [Suspect]
     Route: 064
  3. FOLIC ACID [Concomitant]
     Route: 064

REACTIONS (9)
  - PULMONARY ARTERY STENOSIS CONGENITAL [None]
  - NEONATAL RESPIRATORY DISTRESS SYNDROME [None]
  - SEPTUM PELLUCIDUM AGENESIS [None]
  - PACHYGYRIA [None]
  - URINARY TRACT DISORDER [None]
  - HYPERBILIRUBINAEMIA [None]
  - ANAEMIA [None]
  - PREMATURE BABY [None]
  - ATRIAL SEPTAL DEFECT [None]
